FAERS Safety Report 24900375 (Version 3)
Quarter: 2025Q3

REPORT INFORMATION
  Report Type: Spontaneous
  Country: US (occurrence: US)
  Receive Date: 20250129
  Receipt Date: 20250813
  Transmission Date: 20251021
  Serious: Yes (Other)
  Sender: ORGANON
  Company Number: US-ORGANON-O2501USA003014

PATIENT
  Age: 18 Year
  Sex: Female
  Weight: 50.802 kg

DRUGS (1)
  1. NEXPLANON [Suspect]
     Active Substance: ETONOGESTREL
     Indication: Contraception
     Route: 059
     Dates: start: 20230905, end: 20241224

REACTIONS (4)
  - Deep vein thrombosis [Recovering/Resolving]
  - Pneumonia [Unknown]
  - Superficial vein thrombosis [Recovering/Resolving]
  - Menstruation delayed [Not Recovered/Not Resolved]

NARRATIVE: CASE EVENT DATE: 20241215
